FAERS Safety Report 6423428-7 (Version None)
Quarter: 2009Q4

REPORT INFORMATION
  Report Type: 
  Country: None (occurrence: None)
  Receive Date: 20091102
  Receipt Date: 20091023
  Transmission Date: 20100525
  Serious: Yes (Other)
  Sender: FDA-Public Use
  Company Number: B0429580A

PATIENT
  Sex: Male

DRUGS (7)
  1. AVANDAMET [Suspect]
     Dosage: 2TAB PER DAY
     Route: 048
     Dates: start: 20060313, end: 20060626
  2. NOVONORM [Concomitant]
     Dosage: 3MG PER DAY
     Route: 048
  3. ZOCOR [Concomitant]
  4. DETENSIEL [Concomitant]
  5. HYTACAND [Concomitant]
  6. AMLOR [Concomitant]
  7. PLAVIX [Concomitant]

REACTIONS (3)
  - DYSPNOEA EXERTIONAL [None]
  - TREMOR [None]
  - WEIGHT INCREASED [None]
